FAERS Safety Report 13395122 (Version 1)
Quarter: 2017Q1

REPORT INFORMATION
  Report Type: Spontaneous
  Country: US (occurrence: US)
  Receive Date: 20170331
  Receipt Date: 20170331
  Transmission Date: 20170429
  Serious: Yes (Hospitalization)
  Sender: FDA-Public Use
  Company Number: None

PATIENT
  Age: 61 Year
  Sex: Female

DRUGS (2)
  1. VANCOMYCIN 1000MG VIAL [Suspect]
     Active Substance: VANCOMYCIN HYDROCHLORIDE
     Dosage: WITH 500MG TO INFUSE 1.25GR. BID INFUSE
  2. VANCOMYCIN 500 SDV [Suspect]
     Active Substance: VANCOMYCIN HYDROCHLORIDE
     Dosage: WITH 1000MG TO INFUSE 1.25GR BID INFUSE

REACTIONS (1)
  - Leg amputation [None]

NARRATIVE: CASE EVENT DATE: 20170326
